FAERS Safety Report 6409270-1 (Version None)
Quarter: 2009Q4

REPORT INFORMATION
  Report Type: 
  Country: None (occurrence: None)
  Receive Date: 20091019
  Receipt Date: 20091019
  Transmission Date: 20100525
  Serious: Yes (Life-Threatening)
  Sender: FDA-Public Use
  Company Number: None

PATIENT
  Age: 66 Year
  Sex: Male
  Weight: 74.8435 kg

DRUGS (1)
  1. DEXFERRUM [Suspect]
     Indication: ANAEMIA
     Dosage: 100MG IN 100 ML NS SINGLE DOSE IV
     Route: 042
     Dates: start: 20091014, end: 20091014

REACTIONS (2)
  - HYPERSENSITIVITY [None]
  - INFUSION RELATED REACTION [None]
